FAERS Safety Report 6704744-8 (Version None)
Quarter: 2010Q2

REPORT INFORMATION
  Report Type: 
  Country: None (occurrence: None)
  Receive Date: 20100430
  Receipt Date: 20100427
  Transmission Date: 20101027
  Serious: Yes (Hospitalization)
  Sender: FDA-Public Use
  Company Number: JP-B.I. PHARMACEUTICALS,INC./RIDGEFIELD-2010-BP-03587NB

PATIENT
  Age: 85 Year
  Sex: Male

DRUGS (8)
  1. SPIRIVA [Suspect]
     Dosage: 18 MCG
     Route: 055
     Dates: start: 20081201
  2. HARNAL [Concomitant]
     Route: 048
  3. CEROCRAL [Concomitant]
     Route: 048
  4. BIO-THREE [Concomitant]
     Route: 048
  5. MEDICON [Concomitant]
     Route: 048
  6. ONON [Concomitant]
     Route: 048
  7. ALESION [Concomitant]
     Route: 048
  8. MUCOSOLVAN [Concomitant]
     Route: 048

REACTIONS (4)
  - DYSURIA [None]
  - ERYTHEMA MULTIFORME [None]
  - HAEMORRHAGE SUBCUTANEOUS [None]
  - PNEUMONIA [None]
